FAERS Safety Report 6779350-X (Version None)
Quarter: 2010Q2

REPORT INFORMATION
  Report Type: 
  Country: None (occurrence: None)
  Receive Date: 20100618
  Receipt Date: 20100607
  Transmission Date: 20101027
  Serious: Yes (Hospitalization, Other)
  Sender: FDA-Public Use
  Company Number: PHHY2010NZ27977

PATIENT
  Sex: Male

DRUGS (5)
  1. CLOZARIL [Suspect]
     Indication: SCHIZOPHRENIA
     Dosage: 350 MG
     Route: 048
     Dates: start: 20020402, end: 20100107
  2. ACCURETIC [Concomitant]
     Indication: BLOOD PRESSURE INCREASED
     Dosage: 20/12.5 MG
     Route: 048
  3. ATORVASTATIN [Concomitant]
     Indication: LIPIDS ABNORMAL
     Dosage: 40 MG
     Route: 048
  4. ASPIRIN [Concomitant]
     Dosage: 100 MG
     Route: 048
  5. PIOGLITAZONE [Concomitant]
     Indication: DIABETES MELLITUS
     Dosage: 45 MG
     Route: 048

REACTIONS (7)
  - ABDOMINAL PAIN [None]
  - COLITIS [None]
  - GASTROINTESTINAL OEDEMA [None]
  - LARGE INTESTINAL ULCER [None]
  - NEUTROPHIL COUNT INCREASED [None]
  - VOMITING [None]
  - WHITE BLOOD CELL COUNT INCREASED [None]
